FAERS Safety Report 25246392 (Version 1)
Quarter: 2025Q2

REPORT INFORMATION
  Report Type: Report from Study
  Country: IT (occurrence: IT)
  Receive Date: 20250428
  Receipt Date: 20250428
  Transmission Date: 20250716
  Serious: Yes (Hospitalization)
  Sender: HILL DERMACEUTICALS, INC.
  Company Number: IT-Hill Dermaceuticals, Inc.-2175741

PATIENT
  Age: 78 Year
  Sex: Male
  Weight: 74 kg

DRUGS (9)
  1. TOLAK [Suspect]
     Active Substance: FLUOROURACIL
     Indication: Product used for unknown indication
     Dates: end: 20241125
  2. DOCETAXEL [Suspect]
     Active Substance: DOCETAXEL
     Dates: end: 20241125
  3. ONDANSETRON HYDROCHLORIDE [Concomitant]
     Active Substance: ONDANSETRON HYDROCHLORIDE
  4. AMLODIPINE [Concomitant]
     Active Substance: AMLODIPINE BESYLATE
  5. OLMESARTAN MEDOXOMIL [Concomitant]
     Active Substance: OLMESARTAN MEDOXOMIL
  6. CLONIDINE HYDROCHLORIDE [Concomitant]
     Active Substance: CLONIDINE HYDROCHLORIDE
  7. Zarzio (Filgrastim) [Concomitant]
  8. Binocrit (Epoetin alfa) [Concomitant]
  9. OXALIPLATIN [Suspect]
     Active Substance: OXALIPLATIN
     Dates: end: 20241125

REACTIONS (2)
  - Vomiting [Recovered/Resolved]
  - Diarrhoea [Not Recovered/Not Resolved]

NARRATIVE: CASE EVENT DATE: 20241130
